FAERS Safety Report 11375660 (Version 4)
Quarter: 2015Q3

REPORT INFORMATION
  Report Type: Spontaneous
  Country: CZ (occurrence: CZ)
  Receive Date: 20150813
  Receipt Date: 20150917
  Transmission Date: 20151125
  Serious: Yes (Death, Other)
  Sender: FDA-Public Use
  Company Number: CZ-UCBSA-2015025177

PATIENT
  Age: 40 Year
  Sex: Male
  Weight: 124 kg

DRUGS (4)
  1. AULIN [Concomitant]
     Active Substance: NIMESULIDE
     Indication: ANKYLOSING SPONDYLITIS
     Dosage: UNK
     Route: 048
     Dates: start: 2012, end: 20150724
  2. MORPHINE HYDROCHLORIDE [Concomitant]
     Active Substance: MORPHINE HYDROCHLORIDE
     Indication: ANKYLOSING SPONDYLITIS
     Dosage: 30 MG, ONCE DAILY (QD)
     Route: 048
     Dates: start: 20130804, end: 20150724
  3. CIMZIA [Suspect]
     Active Substance: CERTOLIZUMAB PEGOL
     Indication: ANKYLOSING SPONDYLITIS
     Dosage: 400 MG, EV 2 WEEKS(QOW)
     Route: 058
     Dates: start: 20150420, end: 20150617
  4. METOJECT [Concomitant]
     Active Substance: METHOTREXATE SODIUM
     Indication: ANKYLOSING SPONDYLITIS
     Dosage: 50 MG/ML , WEEKLY (QW)
     Route: 051
     Dates: start: 20150610, end: 20150724

REACTIONS (6)
  - Treatment noncompliance [Unknown]
  - Ventricular hypertrophy [Fatal]
  - Weight increased [Unknown]
  - Pulmonary embolism [Fatal]
  - Venous thrombosis limb [Fatal]
  - Arteriosclerosis [Fatal]

NARRATIVE: CASE EVENT DATE: 2015
